FAERS Safety Report 6744323-X (Version None)
Quarter: 2010Q2

REPORT INFORMATION
  Report Type: 
  Country: None (occurrence: None)
  Receive Date: 20100527
  Receipt Date: 20100330
  Transmission Date: 20101027
  Serious: Yes (Life-Threatening)
  Sender: FDA-Public Use
  Company Number: US-MERCK-1003USA04816

PATIENT
  Age: 65 Year
  Sex: Male

DRUGS (3)
  1. IVEMEND [Suspect]
     Indication: PROPHYLAXIS OF NAUSEA AND VOMITING
     Route: 051
     Dates: start: 20100329, end: 20100329
  2. FOLIC ACID [Concomitant]
     Route: 065
  3. METOPROLOL [Concomitant]
     Route: 065

REACTIONS (5)
  - APNOEA [None]
  - BLOOD PRESSURE DECREASED [None]
  - INCONTINENCE [None]
  - LOSS OF CONSCIOUSNESS [None]
  - MOANING [None]
